FAERS Safety Report 5024928-7 (Version None)
Quarter: 2006Q2

REPORT INFORMATION
  Report Type: 
  Country: None (occurrence: None)
  Receive Date: 20060607
  Receipt Date: 20060529
  Transmission Date: 20061013
  Serious: Yes (Hospitalization)
  Sender: FDA-Public Use
  Company Number: IT-2006-013522

PATIENT
  Age: 86 Year
  Sex: Male

DRUGS (6)
  1. SOTALOL HCL [Suspect]
     Indication: ISCHAEMIC CARDIOMYOPATHY
     Dosage: 80 MG, ORAL
     Route: 048
     Dates: start: 20051001, end: 20060501
  2. VALSARTAN [Concomitant]
  3. FUROSEMIDE [Concomitant]
  4. UNIPRIL (RAMIPRIL) [Concomitant]
  5. CARDIRENE (ACETYLSALICYLATE LYSINE) [Concomitant]
  6. LUVION (CANRENOIC ACID) [Concomitant]

REACTIONS (1)
  - CRYPTOGENIC ORGANIZING PNEUMONIA [None]
